FAERS Safety Report 8583281-2 (Version None)
Quarter: 2012Q3

REPORT INFORMATION
  Report Type: 
  Country: None (occurrence: None)
  Receive Date: 20120809
  Receipt Date: 20120802
  Transmission Date: 20120928
  Serious: Yes (Other)
  Sender: FDA-Public Use
  Company Number: DE-B.I. PHARMACEUTICALS,INC./RIDGEFIELD-2012-DE-01666DE

PATIENT
  Sex: Female
  Weight: 68 kg

DRUGS (11)
  1. PANTOPRAZOLE [Concomitant]
     Indication: ERUCTATION
     Dosage: 20 MG
  2. THORASEMID [Concomitant]
     Indication: CARDIAC FAILURE
     Dosage: 5 MG
  3. PRADAXA [Suspect]
     Dosage: 150 MG
     Dates: start: 20120220
  4. CAPTOPRIL [Concomitant]
     Indication: HYPERTENSION
     Dosage: 12.5 MG
  5. SEROQUEL [Concomitant]
     Indication: RESTLESSNESS
     Dosage: 12.5 MG
  6. METOPROLOL TARTRATE [Concomitant]
     Indication: CARDIAC FAILURE
     Dosage: 95 NR
  7. SEROQUEL [Concomitant]
     Indication: BIPOLAR DISORDER
  8. SEROQUEL [Concomitant]
     Indication: SCHIZOPHRENIA
  9. CITALOPRAM HYDROBROMIDE [Concomitant]
     Indication: DEPRESSION
     Dosage: 10 MG
  10. PRADAXA [Suspect]
     Indication: ATRIAL FIBRILLATION
     Dosage: 220 MG
  11. METAMIZOL [Concomitant]
     Indication: BACK PAIN

REACTIONS (5)
  - HAEMOGLOBIN DECREASED [None]
  - CONSTIPATION [None]
  - ANAL HAEMORRHAGE [None]
  - MYELODYSPLASTIC SYNDROME [None]
  - FAECES HARD [None]
